FAERS Safety Report 11018077 (Version 2)
Quarter: 2015Q2

REPORT INFORMATION
  Report Type: Spontaneous
  Country: US (occurrence: US)
  Receive Date: 20150412
  Receipt Date: 20150524
  Transmission Date: 20150821
  Serious: Yes (Other)
  Sender: FDA-Public Use
  Company Number: US-JNJFOC-20130313835

PATIENT
  Sex: Female

DRUGS (5)
  1. MESNA. [Suspect]
     Active Substance: MESNA
     Indication: UTERINE LEIOMYOSARCOMA
     Dosage: OVER 8 HOURS STARTING IMMEDIATELY AFTER THE IFOSFAMIDE DAY 1-3
     Route: 042
  2. IFOSFAMIDE. [Suspect]
     Active Substance: IFOSFAMIDE
     Indication: UTERINE LEIOMYOSARCOMA
     Dosage: 1.2 GM/M2 , DAY 1-3
     Route: 042
  3. DOXORUBICIN [Suspect]
     Active Substance: DOXORUBICIN
     Indication: UTERINE LEIOMYOSARCOMA
     Dosage: DAYS 1-3
     Route: 042
  4. MESNA. [Suspect]
     Active Substance: MESNA
     Indication: UTERINE LEIOMYOSARCOMA
     Dosage: PRIOR TO IFOSFAMIDE DAY 1
     Route: 042
  5. DACARBAZINE. [Suspect]
     Active Substance: DACARBAZINE
     Indication: UTERINE LEIOMYOSARCOMA
     Dosage: DAY 1-3
     Route: 042

REACTIONS (1)
  - Toxicity to various agents [Unknown]
